FAERS Safety Report 18479382 (Version 1)
Quarter: 2020Q4

REPORT INFORMATION
  Report Type: Spontaneous
  Country: US (occurrence: US)
  Receive Date: 20201109
  Receipt Date: 20201109
  Transmission Date: 20210114
  Serious: Yes (Hospitalization, Other)
  Sender: FDA-Public Use
  Company Number: US-STRIDES ARCOLAB LIMITED-2020SP013436

PATIENT
  Age: 1 Day
  Sex: Male
  Weight: 3.32 kg

DRUGS (2)
  1. FIORICET [Suspect]
     Active Substance: ACETAMINOPHEN\BUTALBITAL\CAFFEINE
     Indication: PRODUCT USED FOR UNKNOWN INDICATION
     Dosage: UNK
     Route: 064
  2. ACETAZOLAMIDE. [Suspect]
     Active Substance: ACETAZOLAMIDE
     Indication: PRODUCT USED FOR UNKNOWN INDICATION
     Dosage: UNK
     Route: 064

REACTIONS (7)
  - Respiratory distress [Unknown]
  - Autism spectrum disorder [Unknown]
  - Grunting [Unknown]
  - Neonatal tachypnoea [Unknown]
  - Neonatal hypoxia [Unknown]
  - Foetal exposure during pregnancy [Unknown]
  - Metabolic acidosis [Recovered/Resolved]
